FAERS Safety Report 13026408 (Version 1)
Quarter: 2016Q4

REPORT INFORMATION
  Report Type: Spontaneous
  Country: GB (occurrence: GB)
  Receive Date: 20161214
  Receipt Date: 20161214
  Transmission Date: 20170207
  Serious: Yes (Other)
  Sender: FDA-Public Use
  Company Number: GB-009507513-1612GBR004385

PATIENT
  Sex: Female

DRUGS (1)
  1. NEXPLANON [Suspect]
     Active Substance: ETONOGESTREL
     Indication: CONTRACEPTIVE IMPLANT
     Dosage: UNK

REACTIONS (5)
  - Emotional distress [Unknown]
  - Infertility [Unknown]
  - Device dislocation [Unknown]
  - Menstruation irregular [Unknown]
  - Cough [Unknown]

NARRATIVE: CASE EVENT DATE: 20161116
